FAERS Safety Report 7934796-9 (Version None)
Quarter: 2011Q4

REPORT INFORMATION
  Report Type: 
  Country: None (occurrence: None)
  Receive Date: 20111122
  Receipt Date: 20111111
  Transmission Date: 20120403
  Serious: Yes (Death)
  Sender: FDA-Public Use
  Company Number: JP-SANOFI-AVENTIS-2011SA076088

PATIENT
  Sex: Male
  Weight: 15 kg

DRUGS (21)
  1. POLYMYXIN B SULFATE [Concomitant]
     Dates: start: 20100525, end: 20100529
  2. FUROSEMIDE [Concomitant]
     Dates: start: 20100526, end: 20100526
  3. METHYLPREDNISOLONE SODIUM SUCCINATE [Concomitant]
     Dates: start: 20100528, end: 20100529
  4. ANTI-THYMOCYTE GLOBULIN NOS [Suspect]
     Indication: BONE MARROW CONDITIONING REGIMEN
     Route: 042
     Dates: start: 20100528, end: 20100529
  5. FILGRASTIM [Concomitant]
     Dates: start: 20100525, end: 20100526
  6. CEFOPERAZONE SODIUM [Concomitant]
     Dates: start: 20100525, end: 20100529
  7. GANCICLOVIR [Concomitant]
     Dates: start: 20100525, end: 20100525
  8. URSODIOL [Concomitant]
     Dates: start: 20100505, end: 20100529
  9. CARPERITIDE [Concomitant]
     Dates: start: 20100525, end: 20100529
  10. VANCOMYCIN HYCHLORIDE [Concomitant]
     Dates: start: 20100525, end: 20100529
  11. DALTEPARIN SODIUM [Concomitant]
     Dates: start: 20100525, end: 20100529
  12. ALL OTHER THERAPEUTIC PRODUCTS [Concomitant]
     Dates: start: 20100525, end: 20100525
  13. ALBUMIN NORMAL HUMAN SERUM/IMMUNOGLOBULIN HUMAN NORMAL [Concomitant]
     Dates: start: 20100526, end: 20100526
  14. MICAFUNGIN SODIUM [Concomitant]
     Dates: start: 20100525, end: 20100529
  15. SULBACTAM SODIUM [Concomitant]
     Dates: start: 20100525, end: 20100529
  16. RED BLOOD CELLS, CONCENTRATED [Concomitant]
     Dates: start: 20100525, end: 20100529
  17. PLATELETS [Concomitant]
     Dates: start: 20100525, end: 20100529
  18. FLUDARA [Suspect]
     Indication: BONE MARROW CONDITIONING REGIMEN
     Route: 065
     Dates: start: 20100528, end: 20100529
  19. ACYCLOVIR [Concomitant]
     Dates: start: 20100525, end: 20100529
  20. VORICONAZOLE [Concomitant]
     Dates: start: 20100525, end: 20100529
  21. VANCOMYCIN [Concomitant]
     Dates: start: 20100526, end: 20100528

REACTIONS (2)
  - CARDIAC FAILURE [None]
  - CARDIOMYOPATHY [None]
